FAERS Safety Report 12959513 (Version 6)
Quarter: 2017Q2

REPORT INFORMATION
  Report Type: Report from Study
  Country: GB (occurrence: GB)
  Receive Date: 20161121
  Receipt Date: 20170529
  Transmission Date: 20170830
  Serious: Yes (Hospitalization, Other)
  Sender: FDA-Public Use
  Company Number: GB-BRISTOL-MYERS SQUIBB COMPANY-BMS-2016-097155

PATIENT
  Age: 81 Year
  Sex: Female

DRUGS (2)
  1. ABATACEPT [Suspect]
     Active Substance: ABATACEPT
     Indication: RHEUMATOID ARTHRITIS
     Dosage: 125 MG, QWK
     Route: 058
     Dates: start: 20160301
  2. ABATACEPT [Suspect]
     Active Substance: ABATACEPT
     Indication: PRODUCT USED FOR UNKNOWN INDICATION
     Dosage: 125 MG, UNK
     Route: 058
     Dates: start: 20160211

REACTIONS (6)
  - Pleural effusion [Unknown]
  - Insomnia [Unknown]
  - Drug ineffective [Unknown]
  - Pulmonary oedema [Not Recovered/Not Resolved]
  - Rash macular [Unknown]
  - Pain [Unknown]

NARRATIVE: CASE EVENT DATE: 20161021
